FAERS Safety Report 4714605-1 (Version None)
Quarter: 2005Q3

REPORT INFORMATION
  Report Type: 
  Country: None (occurrence: None)
  Receive Date: 20050714
  Receipt Date: 20050714
  Transmission Date: 20060218
  Serious: Yes (Life-Threatening, Hospitalization)
  Sender: FDA-Public Use
  Company Number: None

PATIENT
  Age: 89 Year
  Sex: Female
  Weight: 55.3388 kg

DRUGS (10)
  1. ZYVOX [Suspect]
     Indication: OSTEOMYELITIS
     Dosage: 600MG TWICE DAILY ORAL
     Route: 048
     Dates: start: 20050425, end: 20050516
  2. PEPCID [Concomitant]
  3. FLAGYL [Concomitant]
  4. PHENOBARBITAL [Concomitant]
  5. MAXZIDE [Concomitant]
  6. GLYBURIDE [Concomitant]
  7. SYNTHROID [Concomitant]
  8. PROZAC [Concomitant]
  9. XANAX [Concomitant]
  10. TYLENOL [Concomitant]

REACTIONS (5)
  - ASTHENIA [None]
  - DEHYDRATION [None]
  - DIARRHOEA [None]
  - THROMBOCYTOPENIA [None]
  - TREATMENT NONCOMPLIANCE [None]
